FAERS Safety Report 7821308-3 (Version None)
Quarter: 2011Q4

REPORT INFORMATION
  Report Type: 
  Country: None (occurrence: None)
  Receive Date: 20111018
  Receipt Date: 20100827
  Transmission Date: 20120403
  Serious: No
  Sender: FDA-Public Use
  Company Number: US-ASTRAZENECA-2010SE40497

PATIENT
  Sex: Male

DRUGS (1)
  1. SYMBICORT [Suspect]
     Indication: ASTHMA
     Dosage: 320 TWO TIMES A DAY
     Route: 055
     Dates: start: 20100701

REACTIONS (4)
  - BACK PAIN [None]
  - DYSPHONIA [None]
  - OROPHARYNGEAL PAIN [None]
  - HYPERHIDROSIS [None]
